FAERS Safety Report 12094034 (Version 1)
Quarter: 2016Q1

REPORT INFORMATION
  Report Type: Spontaneous
  Country: US (occurrence: US)
  Receive Date: 20160219
  Receipt Date: 20160219
  Transmission Date: 20160526
  Serious: Yes (Other)
  Sender: FDA-Public Use
  Company Number: US-TEVA-636006USA

PATIENT
  Sex: Male

DRUGS (1)
  1. PROAIR HFA [Suspect]
     Active Substance: ALBUTEROL SULFATE
     Route: 065

REACTIONS (5)
  - Oesophageal carcinoma [Unknown]
  - Nasal congestion [Unknown]
  - Small cell lung cancer [Unknown]
  - Small cell carcinoma [Unknown]
  - Monoplegia [Unknown]
